FAERS Safety Report 10267931 (Version 2)
Quarter: 2014Q2

REPORT INFORMATION
  Report Type: Spontaneous
  Country: US (occurrence: US)
  Receive Date: 20140630
  Receipt Date: 20140630
  Transmission Date: 20141212
  Serious: Yes (Hospitalization, Other)
  Sender: FDA-Public Use
  Company Number: US-DENDREON CORPORATION-2014PROUSA03823

PATIENT
  Age: 78 Year
  Sex: Male

DRUGS (3)
  1. PROVENGE [Suspect]
     Indication: PROSTATE CANCER METASTATIC
     Dosage: 250 ML, SINGLE
     Route: 042
     Dates: start: 20140324, end: 20140324
  2. PROVENGE [Suspect]
     Dosage: 250 ML, SINGLE
     Route: 042
     Dates: start: 20140407, end: 20140407
  3. PROVENGE [Suspect]
     Dosage: 250 ML, SINGLE
     Route: 042
     Dates: start: 20140421, end: 20140421

REACTIONS (4)
  - Atrioventricular block first degree [Not Recovered/Not Resolved]
  - Pleural effusion [Unknown]
  - Disease progression [Not Recovered/Not Resolved]
  - Anaemia [Unknown]
